FAERS Safety Report 10249437 (Version 1)
Quarter: 2014Q2

REPORT INFORMATION
  Report Type: Spontaneous
  Country: US (occurrence: None)
  Receive Date: 20140618
  Receipt Date: 20140618
  Transmission Date: 20141212
  Serious: No
  Sender: FDA-Public Use
  Company Number: None

PATIENT
  Age: 67 Year
  Sex: Female
  Weight: 77.11 kg

DRUGS (1)
  1. MIRVASO [Suspect]
     Indication: ERYTHEMA
     Dosage: APPLIED TO A SURFACE USUALLY THE SKIN.
     Route: 061
     Dates: start: 20140602, end: 20140614

REACTIONS (4)
  - Pyrexia [None]
  - Flushing [None]
  - Skin warm [None]
  - Rebound effect [None]
